FAERS Safety Report 10620931 (Version 2)
Quarter: 2014Q4

REPORT INFORMATION
  Report Type: Report from Study
  Country: NL (occurrence: NL)
  Receive Date: 20141202
  Receipt Date: 20141202
  Transmission Date: 20150529
  Serious: Yes (Other)
  Sender: FDA-Public Use
  Company Number: NL-AMGEN-NLDSL2012086731

PATIENT
  Age: 82 Year
  Sex: Female

DRUGS (2)
  1. ARANESP [Suspect]
     Active Substance: DARBEPOETIN ALFA
     Indication: PRODUCT USED FOR UNKNOWN INDICATION
     Dosage: 1 ML (500MCG/ML), Q2WK
     Route: 065
  2. KLACID                             /00984601/ [Concomitant]
     Dosage: UNK

REACTIONS (40)
  - Eye infection [Unknown]
  - Eye pain [Unknown]
  - Pain [Unknown]
  - Drug effect incomplete [Unknown]
  - Respiratory tract infection [Unknown]
  - Nasopharyngitis [Unknown]
  - Limb discomfort [Unknown]
  - Asthma [Unknown]
  - Eye infection viral [Unknown]
  - Gout [Unknown]
  - Feeling abnormal [Unknown]
  - Bacterial test positive [Unknown]
  - Osteoarthritis [Unknown]
  - Dizziness [Unknown]
  - Musculoskeletal discomfort [Unknown]
  - Nausea [Unknown]
  - Cough [Unknown]
  - Malaise [Unknown]
  - Pruritus [Unknown]
  - Pneumonia [Unknown]
  - Haemorrhage [Unknown]
  - Arthritis [Unknown]
  - Abdominal discomfort [Unknown]
  - Dyspepsia [Unknown]
  - Pain in extremity [Unknown]
  - Trichorrhexis [Recovering/Resolving]
  - Epistaxis [Unknown]
  - Arthralgia [Unknown]
  - Haemoptysis [Recovered/Resolved]
  - Haematoma [Unknown]
  - Chest discomfort [Unknown]
  - Alopecia [Recovering/Resolving]
  - Anxiety [Unknown]
  - Intermittent claudication [Unknown]
  - Cataract [Unknown]
  - Pyrexia [Unknown]
  - Haemoglobin abnormal [Unknown]
  - Pallor [Unknown]
  - Fatigue [Unknown]
  - Drug ineffective [Unknown]
